FAERS Safety Report 6146380-0 (Version None)
Quarter: 2009Q2

REPORT INFORMATION
  Report Type: 
  Country: None (occurrence: None)
  Receive Date: 20090407
  Receipt Date: 20090403
  Transmission Date: 20091009
  Serious: Yes (Hospitalization)
  Sender: FDA-Public Use
  Company Number: US-BRISTOL-MYERS SQUIBB COMPANY-14574305

PATIENT
  Age: 85 Year
  Sex: Female

DRUGS (12)
  1. COUMADIN [Suspect]
  2. SPIRIVA [Suspect]
     Indication: EMPHYSEMA
     Dosage: SPIRIVA HANDIHALER.1 CAPSULE QD FORM OF ADMIN: KAI
     Route: 055
     Dates: start: 20040101
  3. FUROSEMIDE [Concomitant]
     Indication: CARDIAC FAILURE CONGESTIVE
  4. DIGOXIN [Concomitant]
     Indication: CARDIAC FAILURE CONGESTIVE
  5. KLOR-CON [Concomitant]
     Indication: CARDIAC FAILURE CONGESTIVE
  6. ATACAND [Concomitant]
     Indication: CARDIAC FAILURE CONGESTIVE
  7. COREG [Concomitant]
     Indication: CARDIAC FAILURE CONGESTIVE
  8. CLARINEX [Concomitant]
     Indication: HYPERSENSITIVITY
  9. FLUTICASONE PROPIONATE [Concomitant]
     Indication: HYPERSENSITIVITY
  10. ZOCOR [Concomitant]
     Indication: BLOOD CHOLESTEROL INCREASED
  11. ADVAIR HFA [Concomitant]
     Indication: EMPHYSEMA
  12. ALBUTEROL [Concomitant]
     Indication: EMPHYSEMA

REACTIONS (3)
  - BLOOD PRESSURE DECREASED [None]
  - DEPRESSION [None]
  - EPISTAXIS [None]
